FAERS Safety Report 11363000 (Version 1)
Quarter: 2015Q3

REPORT INFORMATION
  Report Type: Spontaneous
  Country: CH (occurrence: None)
  Receive Date: 20150807
  Receipt Date: 20150807
  Transmission Date: 20151125
  Serious: Yes (Death, Hospitalization)
  Sender: FDA-Public Use
  Company Number: NSR_02188_2015

PATIENT
  Age: 40 Year
  Sex: Male
  Weight: 63 kg

DRUGS (10)
  1. CLONAZEPAM. [Concomitant]
     Active Substance: CLONAZEPAM
  2. GENERAL ANESTESIA [Concomitant]
  3. MORPHINE (MORPHINE) [Suspect]
     Active Substance: MORPHINE
     Indication: ABDOMINAL PAIN
     Dosage: DF
  4. ANALGESICS [Concomitant]
     Active Substance: UNSPECIFIED INGREDIENT
  5. OXYCODONE [Concomitant]
     Active Substance: OXYCODONE
  6. ANTINFLAMMATORY AGENTS, NON-STEROIDS [Concomitant]
  7. CORTICOSTEROID NOS [Concomitant]
     Active Substance: CORTICOSTEROID NOS
  8. DIAZEPAM. [Concomitant]
     Active Substance: DIAZEPAM
  9. CITALOPRAM [Concomitant]
     Active Substance: CITALOPRAM HYDROBROMIDE
  10. TRAMADOL (TRAMADOL) [Suspect]
     Active Substance: TRAMADOL
     Indication: PRODUCT USED FOR UNKNOWN INDICATION
     Dosage: DF NOT THE PRESCRIBED AMOUNT

REACTIONS (11)
  - Tachycardia [None]
  - Loss of consciousness [None]
  - Arthrodesis [None]
  - Iliac artery perforation [None]
  - Toxicity to various agents [None]
  - Cardio-respiratory arrest [None]
  - Pelvic haemorrhage [None]
  - Extravasation [None]
  - Retroperitoneal haematoma [None]
  - Intra-abdominal haemorrhage [None]
  - Abdominal pain [None]
